FAERS Safety Report 18789521 (Version 1)
Quarter: 2021Q1

REPORT INFORMATION
  Report Type: Spontaneous
  Country: US (occurrence: US)
  Receive Date: 20210125
  Receipt Date: 20210125
  Transmission Date: 20210419
  Serious: Yes (Other)
  Sender: FDA-Public Use
  Company Number: US-DRREDDYS-USA/USA/21/0131079

PATIENT
  Age: 23 Year
  Sex: Female

DRUGS (3)
  1. ZENATANE [Suspect]
     Active Substance: ISOTRETINOIN
     Dosage: RMA ISSUE DATE 1 9/1/2020 1:19:29 PM, 10/13/2020 12:10:04 PM, 11/9/2020 4:27:34 PM 12/11/2020 12:45:
     Route: 048
  2. ZENATANE [Suspect]
     Active Substance: ISOTRETINOIN
     Dosage: RMA ISSUE DATE: 12/11/2020 12:45:50 PM, 11/9/2020 4:27:04 PM, 10/13/2020 12:10:41 PM, 9/1/2020 1:19:
     Route: 048
     Dates: end: 20201223
  3. ZENATANE [Suspect]
     Active Substance: ISOTRETINOIN
     Indication: PRODUCT USED FOR UNKNOWN INDICATION
     Dosage: RMA ISSUE DATE 7/28/2020 6:55:42 PM
     Route: 048
     Dates: start: 20200728

REACTIONS (2)
  - Exposure during pregnancy [Unknown]
  - Treatment noncompliance [Unknown]
